FAERS Safety Report 4821202-6 (Version None)
Quarter: 2005Q4

REPORT INFORMATION
  Report Type: 
  Country: None (occurrence: None)
  Receive Date: 20051102
  Receipt Date: 20051019
  Transmission Date: 20060501
  Serious: Yes (Other)
  Sender: FDA-Public Use
  Company Number: US_0510123146

PATIENT
  Age: 16 Year
  Sex: Male
  Weight: 67 kg

DRUGS (1)
  1. STRATTERA [Suspect]
     Indication: ATTENTION DEFICIT/HYPERACTIVITY DISORDER
     Dosage: 80 MG DAY
     Dates: start: 20050301, end: 20050501

REACTIONS (4)
  - CRYING [None]
  - EMOTIONAL DISORDER [None]
  - HOMICIDAL IDEATION [None]
  - SUICIDAL IDEATION [None]
